FAERS Safety Report 16822996 (Version 3)
Quarter: 2019Q4

REPORT INFORMATION
  Report Type: Spontaneous
  Country: FR (occurrence: FR)
  Receive Date: 20190918
  Receipt Date: 20191029
  Transmission Date: 20200122
  Serious: No
  Sender: FDA-Public Use
  Company Number: FR-BEH-2019106437

PATIENT
  Age: 64 Year
  Sex: Male
  Weight: 64 kg

DRUGS (5)
  1. HIZENTRA [Suspect]
     Active Substance: HUMAN IMMUNOGLOBULIN G
     Dosage: UNK
     Route: 058
  2. HIZENTRA [Suspect]
     Active Substance: HUMAN IMMUNOGLOBULIN G
     Indication: PROPHYLAXIS
     Dosage: 6 GRAM, QW
     Route: 058
     Dates: start: 20190704, end: 20190815
  3. ZYDELIG [Suspect]
     Active Substance: IDELALISIB
     Indication: LYMPHOMA
     Dosage: 2 DOSAGE FORM, QD
     Route: 048
     Dates: start: 201708
  4. HIZENTRA [Suspect]
     Active Substance: HUMAN IMMUNOGLOBULIN G
     Dosage: UNK
     Route: 058
  5. BACTRIM [Suspect]
     Active Substance: SULFAMETHOXAZOLE\TRIMETHOPRIM
     Indication: ANTIFUNGAL PROPHYLAXIS
     Dosage: UNK
     Route: 048
     Dates: start: 2017, end: 20190828

REACTIONS (6)
  - Eosinophil count increased [Not Recovered/Not Resolved]
  - Rash pruritic [Not Recovered/Not Resolved]
  - No adverse event [Unknown]
  - Dermatosis [Not Recovered/Not Resolved]
  - Eczema [Not Recovered/Not Resolved]
  - Product use in unapproved indication [Unknown]

NARRATIVE: CASE EVENT DATE: 20190704
